FAERS Safety Report 10370973 (Version 1)
Quarter: 2014Q1

REPORT INFORMATION
  Report Type: Spontaneous
  Country: US (occurrence: None)
  Receive Date: 20140306
  Receipt Date: 20140306
  Transmission Date: 20141002
  Serious: Yes (Hospitalization)
  Sender: FDA-Public Use
  Company Number: 163-21880-13080803

PATIENT
  Age: 78 Year
  Sex: Male

DRUGS (15)
  1. REVLIMID (LENALIDOMIDE) (25 MILLIGRAM, CAPSULES) [Suspect]
     Indication: PLASMA CELL MYELOMA
     Dosage: 25 MG, 21 IN 21 D
     Route: 048
     Dates: start: 20120109, end: 201307
  2. CYMBALTA [Concomitant]
  3. PROTONIX (UNKNOWN) [Concomitant]
  4. FUROSEMIDE (FUROSEMIDE) (UNKNOWN) [Concomitant]
  5. LYRICA (PREGABALIN) (UNKNOWN) [Concomitant]
  6. ZOMETA (ZOLEDRONIC ACID) (UNKNOWN) [Concomitant]
  7. LISINOPRIL (LISINOPRIL) (UNKNOWN) (LISINOPRIL) [Concomitant]
  8. ALLOPURINOL (ALLOPURINOL) (UNKNOWN) [Concomitant]
  9. SIMVASTATIN (SIMVASTATIN) (UNKNOWN) [Concomitant]
  10. METOPROLOL (METOPROLOL) (UNKNOWN) [Concomitant]
  11. MORPHINE (MORPHINE) (UNKNOWN) (MORPHINE) [Concomitant]
  12. MIRALAX (MACROGOL) (UNKNOWN) [Concomitant]
  13. OCUVITE (OCUVITE) (UNKNOWN) [Concomitant]
  14. MULTIVITAMINS (MULTIVITAMINS) (UNKNOWN) [Concomitant]
  15. VELCADE (BORTEZOMIB) (UNKNOWN) [Concomitant]

REACTIONS (3)
  - Pyrexia [None]
  - Local swelling [None]
  - Pain [None]
